FAERS Safety Report 4388431-X (Version None)
Quarter: 2004Q2

REPORT INFORMATION
  Report Type: 
  Country: None (occurrence: None)
  Receive Date: 20040625
  Receipt Date: 20040614
  Transmission Date: 20050107
  Serious: Yes (Hospitalization)
  Sender: FDA-Public Use
  Company Number: 2004-00332FE

PATIENT
  Age: 46 Year
  Sex: Male

DRUGS (1)
  1. PENTASA [Suspect]
     Indication: COLITIS ULCERATIVE
     Route: 054
     Dates: start: 20040213, end: 20040320

REACTIONS (8)
  - COLITIS ULCERATIVE [None]
  - CONDITION AGGRAVATED [None]
  - DERMATITIS BULLOUS [None]
  - ECZEMA [None]
  - EOSINOPHILIA [None]
  - RASH PAPULAR [None]
  - TONSILLITIS [None]
  - TOXIC SKIN ERUPTION [None]
